FAERS Safety Report 25254672 (Version 1)
Quarter: 2025Q2

REPORT INFORMATION
  Report Type: Spontaneous
  Country: US (occurrence: None)
  Receive Date: 20250429
  Receipt Date: 20250429
  Transmission Date: 20250716
  Serious: Yes (Hospitalization)
  Sender: FDA-CTU
  Company Number: None

PATIENT
  Age: 13 Year
  Sex: Male

DRUGS (8)
  1. PULMOZYME [Suspect]
     Active Substance: DORNASE ALFA
     Indication: Cystic fibrosis
     Dosage: FREQUENCY : DAILY;?
     Route: 055
     Dates: start: 202401
  2. ATENOLOL [Concomitant]
     Active Substance: ATENOLOL
  3. CONSTULOSE [Concomitant]
     Active Substance: LACTULOSE
  4. DIPHENHYDRAMINE [Concomitant]
     Active Substance: DIPHENHYDRAMINE
  5. GL YCOPYRROLATE [Concomitant]
  6. GUAIFENESIN [Concomitant]
     Active Substance: GUAIFENESIN
  7. MELATONIN [Concomitant]
     Active Substance: MELATONIN
  8. ALBUTEROL [Concomitant]
     Active Substance: ALBUTEROL

REACTIONS (1)
  - Intestinal obstruction [None]

NARRATIVE: CASE EVENT DATE: 20250421
